FAERS Safety Report 8845170 (Version 1)
Quarter: 2012Q4

REPORT INFORMATION
  Report Type: 
  Country: US (occurrence: None)
  Receive Date: 20121016
  Receipt Date: 20121016
  Transmission Date: 20130627
  Serious: Yes (Hospitalization)
  Sender: FDA-Public Use
  Company Number: None

PATIENT
  Age: 60 Year
  Sex: Female
  Weight: 100 kg

DRUGS (13)
  1. DECADRON [Suspect]
     Indication: MULTIPLE SCLEROSIS
     Dosage: 8 MG, on subsequ iv chronic
     Route: 042
  2. VIT D [Concomitant]
  3. LASIX [Concomitant]
  4. LIPITOR [Concomitant]
  5. GI COCKTAIL [Concomitant]
  6. REQUIP [Concomitant]
  7. NEURONTIN [Concomitant]
  8. LANTUS [Concomitant]
  9. ASI [Concomitant]
  10. VENTOLIN [Concomitant]
  11. ATENOLOL [Concomitant]
  12. LISINOPRIL [Concomitant]
  13. PROMETHAZINE [Concomitant]

REACTIONS (8)
  - Chest pain [None]
  - Hypoaesthesia [None]
  - Hypoaesthesia [None]
  - Muscle spasms [None]
  - Throat tightness [None]
  - Dyspnoea [None]
  - Hypersensitivity [None]
  - Complicated migraine [None]
